FAERS Safety Report 16150217 (Version 1)
Quarter: 2019Q2

REPORT INFORMATION
  Report Type: Spontaneous
  Country: BR (occurrence: BR)
  Receive Date: 20190403
  Receipt Date: 20190403
  Transmission Date: 20190711
  Serious: Yes (Other)
  Sender: FDA-Public Use
  Company Number: PHHY2019BR072375

PATIENT
  Sex: Female
  Weight: 95 kg

DRUGS (1)
  1. FORASEQ [Suspect]
     Active Substance: BUDESONIDE\FORMOTEROL FUMARATE
     Indication: ASTHMA
     Dosage: UNK UNK, BID
     Route: 055

REACTIONS (7)
  - Arthropathy [Unknown]
  - Mass [Unknown]
  - Breast cancer [Unknown]
  - Bone marrow infiltration [Unknown]
  - Movement disorder [Unknown]
  - Pain in extremity [Not Recovered/Not Resolved]
  - Asthma [Unknown]
